FAERS Safety Report 24572124 (Version 1)
Quarter: 2024Q4

REPORT INFORMATION
  Report Type: Spontaneous
  Country: FR (occurrence: FR)
  Receive Date: 20241101
  Receipt Date: 20241101
  Transmission Date: 20250115
  Serious: Yes (Life-Threatening)
  Sender: VERTEX
  Company Number: None

PATIENT
  Age: 33 Year
  Sex: Male
  Weight: 70 kg

DRUGS (6)
  1. ELEXACAFTOR\IVACAFTOR\TEZACAFTOR [Interacting]
     Active Substance: ELEXACAFTOR\IVACAFTOR\TEZACAFTOR
     Indication: Cystic fibrosis
     Dosage: TWO TABS ONCE A DAY
     Route: 048
     Dates: start: 202102
  2. ALDACTONE [Suspect]
     Active Substance: SPIRONOLACTONE
     Indication: Hepatic failure
     Dosage: 100 MG
     Route: 048
     Dates: start: 202406
  3. ALDACTONE [Suspect]
     Active Substance: SPIRONOLACTONE
     Dosage: 50 MG
     Route: 048
     Dates: start: 202407, end: 20240920
  4. FUROSEMIDE [Suspect]
     Active Substance: FUROSEMIDE
     Indication: Oedema peripheral
     Dosage: 40 MILLIGRAMS
     Route: 048
     Dates: start: 202406
  5. FUROSEMIDE [Suspect]
     Active Substance: FUROSEMIDE
     Dosage: 20 MILLIGRAMS
     Route: 048
     Dates: start: 202407, end: 20240920
  6. FUROSEMIDE [Suspect]
     Active Substance: FUROSEMIDE
     Dosage: 40 MILLIGRAMS
     Route: 048
     Dates: start: 20240925

REACTIONS (1)
  - Hepatic encephalopathy [Not Recovered/Not Resolved]

NARRATIVE: CASE EVENT DATE: 20240701
